FAERS Safety Report 9887594 (Version 1)
Quarter: 2013Q4

REPORT INFORMATION
  Report Type: Spontaneous
  Country: US (occurrence: None)
  Receive Date: 20131223
  Receipt Date: 20131223
  Transmission Date: 20140711
  Serious: No
  Sender: FDA-Public Use
  Company Number: 220430LEO

PATIENT
  Age: 65 Year
  Sex: Female

DRUGS (1)
  1. PICATO (0.015%) [Suspect]
     Indication: HEAVY EXPOSURE TO ULTRAVIOLET LIGHT
     Dosage: 1 IN 1 D
     Dates: start: 20130204, end: 20130406

REACTIONS (4)
  - Diarrhoea [None]
  - Application site erythema [None]
  - Application site burn [None]
  - Drug administration error [None]
